FAERS Safety Report 8902725 (Version 1)
Quarter: 2012Q4

REPORT INFORMATION
  Report Type: 
  Country: US (occurrence: US)
  Receive Date: 20121112
  Receipt Date: 20121112
  Transmission Date: 20130627
  Serious: No
  Sender: FDA-Public Use
  Company Number: US-009507513-1211USA004243

PATIENT
  Age: 61 Year
  Sex: Female

DRUGS (5)
  1. FOSAMAX [Suspect]
     Indication: BONE DISORDER
     Dosage: 70 mg, qw
     Route: 048
     Dates: start: 2002
  2. NORVASTOR [Concomitant]
     Indication: BLOOD PRESSURE
  3. CRESTOR [Concomitant]
     Indication: BLOOD CHOLESTEROL
  4. BAYER ASPIRIN [Concomitant]
     Dosage: UNK, qd
  5. NEXIUM [Concomitant]

REACTIONS (1)
  - Breast calcifications [Unknown]
